FAERS Safety Report 6045470-0 (Version None)
Quarter: 2009Q1

REPORT INFORMATION
  Report Type: 
  Country: None (occurrence: None)
  Receive Date: 20090121
  Receipt Date: 20090115
  Transmission Date: 20090719
  Serious: Yes (Death)
  Sender: FDA-Public Use
  Company Number: US-BRISTOL-MYERS SQUIBB COMPANY-14472963

PATIENT
  Age: 46 Year
  Sex: Male

DRUGS (4)
  1. BUSPIRONE HCL [Suspect]
     Route: 048
  2. METHADONE HCL [Suspect]
     Route: 048
  3. PAROXETINE HCL [Suspect]
     Route: 048
  4. SIMVASTATIN [Suspect]
     Route: 048

REACTIONS (1)
  - DRUG TOXICITY [None]
